FAERS Safety Report 7894029-9 (Version None)
Quarter: 2011Q4

REPORT INFORMATION
  Report Type: 
  Country: None (occurrence: None)
  Receive Date: 20111104
  Receipt Date: 20111025
  Transmission Date: 20120403
  Serious: Yes (Hospitalization)
  Sender: FDA-Public Use
  Company Number: US-ACTELION-A-NJ2011-56147

PATIENT

DRUGS (2)
  1. TRACLEER [Suspect]
     Indication: PULMONARY ARTERIAL HYPERTENSION
     Dosage: UNK
     Route: 048
     Dates: start: 20111001, end: 20110101
  2. TRACLEER [Suspect]
     Dosage: UNK
     Route: 048
     Dates: start: 20100617, end: 20110901

REACTIONS (2)
  - PAIN [None]
  - LIVER FUNCTION TEST ABNORMAL [None]
